FAERS Safety Report 20944834 (Version 1)
Quarter: 2022Q2

REPORT INFORMATION
  Report Type: Report from Study
  Country: CA (occurrence: CA)
  Receive Date: 20220610
  Receipt Date: 20220610
  Transmission Date: 20220721
  Serious: Yes (Other)
  Sender: FDA-Public Use
  Company Number: None

PATIENT
  Age: 46 Year
  Sex: Male

DRUGS (16)
  1. ROSUVASTATIN CALCIUM [Suspect]
     Active Substance: ROSUVASTATIN CALCIUM
     Indication: Product used for unknown indication
     Route: 048
  2. METFORMIN HYDROCHLORIDE [Suspect]
     Active Substance: METFORMIN HYDROCHLORIDE
     Indication: Product used for unknown indication
     Dosage: 2 EVERY 1 DAYS
     Route: 048
  3. PERINDOPRIL ERBUMINE [Suspect]
     Active Substance: PERINDOPRIL ERBUMINE
     Indication: Product used for unknown indication
     Route: 048
  4. GLICLAZIDE [Suspect]
     Active Substance: GLICLAZIDE
     Indication: Product used for unknown indication
     Route: 048
  5. ASPIRIN [Concomitant]
     Active Substance: ASPIRIN
     Indication: Product used for unknown indication
     Route: 048
  6. ASPIRIN [Concomitant]
     Active Substance: ASPIRIN
     Indication: Product used for unknown indication
     Route: 048
  7. CLOPIDOGREL BISULFATE [Concomitant]
     Active Substance: CLOPIDOGREL BISULFATE
     Indication: Product used for unknown indication
     Route: 048
  8. PERINDOPRIL [Concomitant]
     Active Substance: PERINDOPRIL
     Indication: Product used for unknown indication
     Route: 048
  9. GLICLAZIDE [Concomitant]
     Active Substance: GLICLAZIDE
     Indication: Product used for unknown indication
     Route: 048
  10. FENOFIBRATE [Concomitant]
     Active Substance: FENOFIBRATE
     Indication: Product used for unknown indication
     Route: 048
  11. FLURBIPROFEN [Concomitant]
     Active Substance: FLURBIPROFEN
     Indication: Product used for unknown indication
     Route: 048
  12. INSULIN DEGLUDEC [Concomitant]
     Active Substance: INSULIN DEGLUDEC
     Indication: Product used for unknown indication
     Route: 065
  13. INSULINE DEGLUDEC, LIRAGLUTIDE [Concomitant]
     Indication: Product used for unknown indication
     Route: 058
  14. FENOFIBRATE [Concomitant]
     Active Substance: FENOFIBRATE
     Indication: Product used for unknown indication
     Route: 048
  15. LIRAGLUTIDE [Concomitant]
     Active Substance: LIRAGLUTIDE
     Indication: Product used for unknown indication
     Route: 065
  16. METOPROLOL TARTRATE [Concomitant]
     Active Substance: METOPROLOL TARTRATE
     Indication: Product used for unknown indication
     Dosage: 2 EVERY 1 DAYS
     Route: 048

REACTIONS (2)
  - Musculoskeletal stiffness [Unknown]
  - Mycobacterium tuberculosis complex test positive [Unknown]
